FAERS Safety Report 8699623 (Version 2)
Quarter: 2013Q4

REPORT INFORMATION
  Report Type: Spontaneous
  Country: BR (occurrence: BR)
  Receive Date: 20120802
  Receipt Date: 20131108
  Transmission Date: 20140711
  Serious: Yes (Death, Other)
  Sender: FDA-Public Use
  Company Number: BR-009507513-1208BRA000233

PATIENT
  Sex: Female

DRUGS (4)
  1. MK-8908 [Suspect]
     Indication: HEPATITIS C
     Dosage: UNK
     Route: 064
  2. PEGASYS [Concomitant]
     Indication: HEPATITIS C
     Dosage: UNK
     Route: 064
  3. LISADOR [Concomitant]
     Route: 064
  4. DRAMIN [Concomitant]
     Route: 064

REACTIONS (3)
  - Heart disease congenital [Fatal]
  - Cardiac operation [Fatal]
  - Foetal exposure during pregnancy [Unknown]
